FAERS Safety Report 23188195 (Version 3)
Quarter: 2023Q4

REPORT INFORMATION
  Report Type: Report from Study
  Country: TW (occurrence: TW)
  Receive Date: 20231115
  Receipt Date: 20231207
  Transmission Date: 20240110
  Serious: Yes (Hospitalization)
  Sender: FDA-Public Use
  Company Number: TW-JNJFOC-20231128706

PATIENT
  Age: 59 Year
  Sex: Female
  Weight: 61.9 kg

DRUGS (15)
  1. AMIVANTAMAB [Suspect]
     Active Substance: AMIVANTAMAB
     Indication: Non-small cell lung cancer metastatic
     Dosage: MOST RECENT DOSE 13-OCT-2023
     Route: 042
     Dates: start: 20230628
  2. PEMETREXED [Suspect]
     Active Substance: PEMETREXED
     Indication: Non-small cell lung cancer metastatic
     Dosage: MOST RECENT DOSE RECEIVED ON 13-OCT-2023
     Route: 042
     Dates: start: 20230628
  3. CARBOPLATIN [Concomitant]
     Active Substance: CARBOPLATIN
     Indication: Non-small cell lung cancer metastatic
     Dosage: MOST RECENT DOSE RECEIVED ON 31-AUG-2023
     Route: 042
     Dates: start: 20230628
  4. DENOSUMAB [Concomitant]
     Active Substance: DENOSUMAB
     Indication: Metastases to bone
     Route: 058
     Dates: start: 20210319
  5. CALCIUM ACETATE [Concomitant]
     Active Substance: CALCIUM ACETATE
     Indication: Premedication
     Route: 048
     Dates: start: 20210406
  6. PREGABALIN [Concomitant]
     Active Substance: PREGABALIN
     Indication: Metastases to bone
     Route: 048
     Dates: start: 20230606
  7. DIPHENHYDRAMINE [Concomitant]
     Active Substance: DIPHENHYDRAMINE
     Indication: Haemorrhoids
     Route: 061
     Dates: start: 20230705
  8. TRIAMCINOLONE [Concomitant]
     Active Substance: TRIAMCINOLONE
     Indication: Stomatitis
     Dosage: NINCORT ORAL GEL 0.1% 6 G /TUBE)
     Route: 061
     Dates: start: 20230715
  9. BUCLIZINE [Concomitant]
     Active Substance: BUCLIZINE
     Indication: Eczema
     Route: 048
     Dates: start: 20230727
  10. TETRACYCLINE HYDROCHLORIDE [Concomitant]
     Active Substance: TETRACYCLINE HYDROCHLORIDE
     Indication: Paronychia
     Dosage: TETRACYCLINE OPH OINT 10 MG/1 G 1% 5 G /TUBE
     Route: 061
     Dates: start: 20230727
  11. TETRACYCLINE HYDROCHLORIDE [Concomitant]
     Active Substance: TETRACYCLINE HYDROCHLORIDE
     Route: 061
     Dates: start: 20230727
  12. EDOXABAN [Concomitant]
     Active Substance: EDOXABAN
     Indication: Deep vein thrombosis
     Route: 048
     Dates: start: 20231006
  13. TRAMADOL [Concomitant]
     Active Substance: TRAMADOL\TRAMADOL HYDROCHLORIDE
     Indication: Metastases to bone
     Route: 048
     Dates: start: 20230818
  14. FAMOTIDINE [Concomitant]
     Active Substance: FAMOTIDINE
     Indication: Prophylaxis
     Route: 048
     Dates: start: 20230513
  15. CELECOXIB [Concomitant]
     Active Substance: CELECOXIB
     Indication: Non-small cell lung cancer metastatic
     Route: 048
     Dates: start: 20230517

REACTIONS (1)
  - Impaired healing [Recovering/Resolving]

NARRATIVE: CASE EVENT DATE: 20231110
